FAERS Safety Report 4765469-1 (Version None)
Quarter: 2005Q3

REPORT INFORMATION
  Report Type: 
  Country: None (occurrence: None)
  Receive Date: 20050908
  Receipt Date: 20050908
  Transmission Date: 20060218
  Serious: Yes (Hospitalization)
  Sender: FDA-Public Use
  Company Number: None

PATIENT
  Age: 20 Year
  Sex: Male
  Weight: 118.7 kg

DRUGS (3)
  1. ASPIRIN [Suspect]
     Indication: TOOTHACHE
     Dosage: COUPLE TIMES/DAY
  2. AMOXICILLIN [Concomitant]
  3. VICODIN [Concomitant]

REACTIONS (6)
  - BLOOD PRESSURE DECREASED [None]
  - GASTROINTESTINAL ULCER [None]
  - MELAENA [None]
  - RECTAL HAEMORRHAGE [None]
  - TACHYCARDIA [None]
  - THROMBOSIS [None]
